FAERS Safety Report 9038287 (Version 1)
Quarter: 2013Q1

REPORT INFORMATION
  Report Type: Spontaneous
  Country: JP (occurrence: JP)
  Receive Date: 20130129
  Receipt Date: 20130129
  Transmission Date: 20140127
  Serious: Yes (Other)
  Sender: FDA-Public Use
  Company Number: JP-ASTELLAS-2013JP000546

PATIENT
  Age: 63 Year
  Sex: Female

DRUGS (14)
  1. PROGRAF [Suspect]
     Indication: PROPHYLAXIS AGAINST GRAFT VERSUS HOST DISEASE
     Route: 065
  2. METHOTREXATE [Concomitant]
     Indication: PROPHYLAXIS AGAINST GRAFT VERSUS HOST DISEASE
     Dosage: 15 MG/M2, UNKNOWN/D
     Route: 065
  3. METHOTREXATE [Concomitant]
     Dosage: 10 MG/M2, UNKNOWN/D
     Route: 065
  4. FLUDARABINE [Concomitant]
     Indication: BONE MARROW CONDITIONING REGIMEN
     Dosage: 25 MG/M2, UNKNOWN/D
     Route: 065
  5. MELPHALAN [Concomitant]
     Indication: BONE MARROW CONDITIONING REGIMEN
     Dosage: 70 MG/M2, UNKNOWN/D
     Route: 065
  6. PHENYTOIN [Concomitant]
     Route: 065
  7. AMPHOTERICIN B [Concomitant]
     Indication: BRONCHOPULMONARY ASPERGILLOSIS
     Dosage: 5 MG/KG, UNKNOWN/D
     Route: 065
  8. MEROPENEM [Concomitant]
     Indication: SEPSIS
     Dosage: 1 G, TID
     Route: 065
  9. VANCOMYCIN [Concomitant]
     Indication: SEPSIS
     Dosage: 0.5 G, TID
     Route: 065
  10. MICAFUNGIN [Concomitant]
     Indication: BRONCHOPULMONARY ASPERGILLOSIS
     Dosage: 5 MG/KG, UNKNOWN/D
     Route: 065
  11. MICAFUNGIN [Concomitant]
     Dosage: 300 MG, UNKNOWN/D
     Route: 065
  12. GANCICLOVIR [Concomitant]
     Dosage: 100 MG, BID
     Route: 065
  13. CEFEPIME [Suspect]
     Dosage: 1 G, TID
     Route: 065
  14. CEFEPIME [Suspect]
     Dosage: UNK
     Route: 065

REACTIONS (2)
  - Drug ineffective [Unknown]
  - Acute graft versus host disease in skin [Recovering/Resolving]
